FAERS Safety Report 18064838 (Version 2)
Quarter: 2020Q4

REPORT INFORMATION
  Report Type: Spontaneous
  Country: DE (occurrence: DE)
  Receive Date: 20200724
  Receipt Date: 20201223
  Transmission Date: 20210113
  Serious: Yes (Hospitalization, Other)
  Sender: FDA-Public Use
  Company Number: DE-SUN PHARMACEUTICAL INDUSTRIES LTD-13SUNBA01P

PATIENT
  Age: 15 Year
  Sex: Male
  Weight: 70 kg

DRUGS (1)
  1. BACLOFEN. [Suspect]
     Active Substance: BACLOFEN
     Indication: PRODUCT USED FOR UNKNOWN INDICATION
     Dosage: UNK MILLIGRAM
     Route: 065

REACTIONS (7)
  - Status epilepticus [Recovering/Resolving]
  - Coma [Recovering/Resolving]
  - Cyanosis [Recovering/Resolving]
  - Bradypnoea [Recovering/Resolving]
  - Generalised tonic-clonic seizure [Recovered/Resolved]
  - Blood creatine phosphokinase increased [Recovered/Resolved]
  - Overdose [Unknown]
